FAERS Safety Report 25532484 (Version 2)
Quarter: 2025Q3

REPORT INFORMATION
  Report Type: Spontaneous
  Country: EU (occurrence: EU)
  Receive Date: 20250709
  Receipt Date: 20250716
  Transmission Date: 20251020
  Serious: Yes (Hospitalization)
  Sender: ABBVIE
  Company Number: None

PATIENT
  Age: 76 Year
  Sex: Female
  Weight: 44 kg

DRUGS (5)
  1. ELAHERE [Suspect]
     Active Substance: MIRVETUXIMAB SORAVTANSINE-GYNX
     Indication: Product used for unknown indication
     Route: 042
     Dates: start: 20250624, end: 20250624
  2. Clemastina [Concomitant]
     Indication: Product used for unknown indication
     Route: 042
  3. DEXAMETHASONE [Concomitant]
     Active Substance: DEXAMETHASONE
     Indication: Product used for unknown indication
     Route: 042
  4. ACETAMINOPHEN [Concomitant]
     Active Substance: ACETAMINOPHEN
     Indication: Product used for unknown indication
     Route: 048
  5. GRANISETRON [Concomitant]
     Active Substance: GRANISETRON
     Indication: Product used for unknown indication
     Route: 048

REACTIONS (5)
  - Altered state of consciousness [Unknown]
  - Feeling hot [Unknown]
  - Hypotension [Unknown]
  - Back pain [Unknown]
  - Flushing [Unknown]

NARRATIVE: CASE EVENT DATE: 20250624
